FAERS Safety Report 7347026-6 (Version None)
Quarter: 2011Q1

REPORT INFORMATION
  Report Type: 
  Country: None (occurrence: None)
  Receive Date: 20110311
  Receipt Date: 20110307
  Transmission Date: 20110831
  Serious: Yes (Death, Other)
  Sender: FDA-Public Use
  Company Number: PHEH2006US14280

PATIENT
  Sex: Female
  Weight: 78.005 kg

DRUGS (8)
  1. DECADRON [Concomitant]
     Dosage: 4 MG, QID
     Route: 048
  2. TAXOTERE [Concomitant]
     Dosage: 100
  3. NEULASTA [Concomitant]
  4. TRAMADOL [Concomitant]
  5. ZOLOFT [Concomitant]
  6. AREDIA [Suspect]
     Dosage: UNK
     Dates: end: 20020101
  7. NAVELBINE [Concomitant]
  8. ZOMETA [Suspect]
     Dosage: 4 MG

REACTIONS (28)
  - LUNG INFILTRATION [None]
  - BONE DENSITY DECREASED [None]
  - DECREASED INTEREST [None]
  - HEPATIC STEATOSIS [None]
  - SYNOVIAL CYST [None]
  - MOUTH ULCERATION [None]
  - INJURY [None]
  - WEIGHT INCREASED [None]
  - MYELOPATHY [None]
  - METASTASES TO CENTRAL NERVOUS SYSTEM [None]
  - OSTEONECROSIS OF JAW [None]
  - PAIN [None]
  - OEDEMA [None]
  - TOOTH FRACTURE [None]
  - BREAST CANCER METASTATIC [None]
  - COLLAPSE OF LUNG [None]
  - OSTEOSCLEROSIS [None]
  - ATELECTASIS [None]
  - FLUID RETENTION [None]
  - NEUTROPENIA [None]
  - PAIN IN JAW [None]
  - GENERAL PHYSICAL HEALTH DETERIORATION [None]
  - DEPRESSION [None]
  - NAUSEA [None]
  - METASTASES TO LUNG [None]
  - VOMITING [None]
  - CATARACT [None]
  - PLEURAL EFFUSION [None]
